FAERS Safety Report 21920403 (Version 1)
Quarter: 2023Q1

REPORT INFORMATION
  Report Type: Spontaneous
  Country: US (occurrence: None)
  Receive Date: 20230126
  Receipt Date: 20230126
  Transmission Date: 20230418
  Serious: Yes (Other)
  Sender: FDA-Public Use
  Company Number: None

PATIENT
  Age: 36 Year
  Sex: Female
  Weight: 63.5 kg

DRUGS (1)
  1. LEVOTHYROXINE [Suspect]
     Active Substance: LEVOTHYROXINE
     Indication: Hypothyroidism
     Dosage: 1, 50 MCG TAB DAILY PO?(NO CLEAR TO READ)?
     Route: 048
     Dates: start: 20220628, end: 20230105

REACTIONS (4)
  - Abdominal pain [None]
  - Rash [None]
  - Pain [None]
  - Therapy interrupted [None]

NARRATIVE: CASE EVENT DATE: 20230105
